FAERS Safety Report 4364171-8 (Version None)
Quarter: 2004Q2

REPORT INFORMATION
  Report Type: 
  Country: None (occurrence: None)
  Receive Date: 20040519
  Receipt Date: 20040507
  Transmission Date: 20050107
  Serious: Yes (Hospitalization)
  Sender: FDA-Public Use
  Company Number: US-JNJFOC-20040501866

PATIENT
  Age: 49 Year
  Sex: Female
  Weight: 147.419 kg

DRUGS (13)
  1. INFLIXIMAB (INFLIXIMAB, RECOMBINANT) LYOPHILIZED POWDER [Suspect]
     Indication: RHEUMATOID ARTHRITIS
     Dosage: INTRAVENOUS
     Route: 042
     Dates: start: 20011019
  2. METHOTREXATE [Concomitant]
  3. PLAQUENIL [Concomitant]
  4. CELLUVISC (CELLUVISC) DROPS [Concomitant]
  5. FOLIC ACID [Concomitant]
  6. ATENOLOL [Concomitant]
  7. ULTRACET [Concomitant]
  8. BEXTRA [Concomitant]
  9. CALCIUM (CALCIUM) [Concomitant]
  10. DYAZIDE [Concomitant]
  11. PROTONIX [Concomitant]
  12. PREDNISONE [Concomitant]
  13. DOXEPIN (DOXEPIN) [Concomitant]

REACTIONS (2)
  - PYELONEPHRITIS [None]
  - UROSEPSIS [None]
